FAERS Safety Report 6514383-X (Version None)
Quarter: 2009Q4

REPORT INFORMATION
  Report Type: 
  Country: None (occurrence: None)
  Receive Date: 20091223
  Receipt Date: 20091214
  Transmission Date: 20100525
  Serious: Yes (Hospitalization)
  Sender: FDA-Public Use
  Company Number: US-BIOGENIDEC-2008BI015836

PATIENT
  Age: 52 Year
  Sex: Female
  Weight: 76 kg

DRUGS (4)
  1. TYSABRI [Suspect]
     Indication: MULTIPLE SCLEROSIS
     Route: 042
     Dates: start: 20050113, end: 20050113
  2. TYSABRI [Suspect]
     Route: 042
     Dates: start: 20080731
  3. OXYCODONE [Concomitant]
     Indication: PAIN
  4. CYMBALTA [Concomitant]
     Indication: DEPRESSION

REACTIONS (11)
  - BURNING SENSATION [None]
  - CARPAL TUNNEL SYNDROME [None]
  - DYSURIA [None]
  - FALL [None]
  - HYPOAESTHESIA [None]
  - NECK PAIN [None]
  - NERVE COMPRESSION [None]
  - PAIN [None]
  - ROAD TRAFFIC ACCIDENT [None]
  - ROTATOR CUFF SYNDROME [None]
  - STRESS [None]
